FAERS Safety Report 9691294 (Version 1)
Quarter: 2013Q4

REPORT INFORMATION
  Report Type: Spontaneous
  Country: US (occurrence: US)
  Receive Date: 20131115
  Receipt Date: 20131115
  Transmission Date: 20140711
  Serious: Yes (Hospitalization, Other)
  Sender: FDA-Public Use
  Company Number: US-BAYER-2013-137711

PATIENT
  Age: 31 Year
  Sex: Female
  Weight: 95.69 kg

DRUGS (16)
  1. YAZ [Suspect]
     Dosage: UNK
  2. ACETAMINOPHEN W/CODEINE [Concomitant]
     Dosage: 300-30 MG
     Route: 048
  3. AMOXICILLIN [Concomitant]
     Dosage: 500 MG, UNK
     Route: 048
  4. CLONAZEPAM [Concomitant]
     Dosage: 0.5 MG, UNK
     Route: 048
  5. CLONAZEPAM [Concomitant]
  6. FLUTICASONE [Concomitant]
     Dosage: 50 MG, UNK
     Route: 045
  7. NEOMYCIN-POLYMYXIN B SULFATE-GRAMICIDIN [Concomitant]
     Dosage: 3.5-1000
  8. PROVENTIL [Concomitant]
     Dosage: 90 MCG/L, UNK
     Route: 045
  9. RISPERIDONE [Concomitant]
     Dosage: 0.25 MG, UNK
     Route: 048
  10. TRIAMCINOLONE [Concomitant]
     Dosage: 0.1%
     Route: 061
  11. VENLAFAXINE [Concomitant]
     Dosage: 75 MG, UNK
     Route: 048
  12. ZOLPIDEM [Concomitant]
     Dosage: 10 MG, UNK
     Route: 048
  13. DILAUDID [Concomitant]
  14. NEXIUM [Concomitant]
     Indication: OESOPHAGEAL SPASM
  15. TYLENOL PM [Concomitant]
  16. OMEPRAZOLE [Concomitant]

REACTIONS (3)
  - Pulmonary embolism [None]
  - Cholecystitis [None]
  - Biliary dyskinesia [None]
